FAERS Safety Report 16314053 (Version 2)
Quarter: 2019Q2

REPORT INFORMATION
  Report Type: Spontaneous
  Country: US (occurrence: US)
  Receive Date: 20190515
  Receipt Date: 20190620
  Transmission Date: 20190711
  Serious: No
  Sender: FDA-Public Use
  Company Number: US-PFIZER INC-2019202908

PATIENT
  Age: 59 Year
  Sex: Female
  Weight: 58.97 kg

DRUGS (1)
  1. ALAVERT ALLERGY [Suspect]
     Active Substance: LORATADINE
     Indication: HYPERSENSITIVITY
     Dosage: 1 DF, DAILY (1 PILL PER DAY BY MOUTH)
     Route: 048

REACTIONS (1)
  - Drug ineffective [Unknown]
